FAERS Safety Report 10218431 (Version 3)
Quarter: 2014Q2

REPORT INFORMATION
  Report Type: Report from Study
  Country: AU (occurrence: AU)
  Receive Date: 20140605
  Receipt Date: 20140616
  Transmission Date: 20141212
  Serious: Yes (Other)
  Sender: FDA-Public Use
  Company Number: AU-ROCHE-1273997

PATIENT
  Sex: 0

DRUGS (3)
  1. VEMURAFENIB [Suspect]
     Indication: METASTATIC MALIGNANT MELANOMA
     Route: 065
  2. DABRAFENIB [Suspect]
     Indication: METASTATIC MALIGNANT MELANOMA
     Route: 065
  3. TRAMETINIB [Suspect]
     Indication: METASTATIC MALIGNANT MELANOMA
     Route: 065

REACTIONS (11)
  - Panniculitis [Recovering/Resolving]
  - Basal cell carcinoma [Unknown]
  - Squamous cell carcinoma [Unknown]
  - Arthralgia [Unknown]
  - Burning sensation [Unknown]
  - Hyperkeratosis [Unknown]
  - Alopecia [Unknown]
  - Folliculitis [Unknown]
  - Hyperkeratosis [Unknown]
  - Photosensitivity reaction [Unknown]
  - Hair texture abnormal [Unknown]
